FAERS Safety Report 7333643-6 (Version None)
Quarter: 2011Q1

REPORT INFORMATION
  Report Type: 
  Country: None (occurrence: None)
  Receive Date: 20110306
  Receipt Date: 20110222
  Transmission Date: 20110831
  Serious: Yes (Hospitalization, Other)
  Sender: FDA-Public Use
  Company Number: US-ELI_LILLY_AND_COMPANY-US201009004684

PATIENT
  Sex: Female
  Weight: 79 kg

DRUGS (13)
  1. FORTEO [Suspect]
     Dosage: 20 UG, DAILY (1/D)
     Route: 058
  2. MULTAQ [Concomitant]
  3. COUMADIN [Concomitant]
  4. TOPROL-XL [Concomitant]
  5. PRILOSEC [Concomitant]
  6. VERAPAMIL [Concomitant]
  7. ZOLOFT [Concomitant]
  8. TRAZODONE [Concomitant]
  9. FORTEO [Suspect]
     Indication: OSTEOPOROSIS
     Dosage: 20 UG, DAILY (1/D)
     Route: 058
     Dates: start: 20100618
  10. FORTEO [Suspect]
     Dosage: 20 UG, DAILY (1/D)
     Route: 058
  11. LORAZEPAM [Concomitant]
  12. ZOCOR [Concomitant]
  13. CALCIUM W/VITAMIN D /00188401/ [Concomitant]

REACTIONS (8)
  - PAIN IN EXTREMITY [None]
  - COMPRESSION FRACTURE [None]
  - VISUAL IMPAIRMENT [None]
  - ARTHRALGIA [None]
  - VIRAL INFECTION [None]
  - MUSCULOSKELETAL PAIN [None]
  - PNEUMONIA [None]
  - MUSCLE SPASMS [None]
